FAERS Safety Report 19967758 (Version 1)
Quarter: 2021Q4

REPORT INFORMATION
  Report Type: Spontaneous
  Country: US (occurrence: US)
  Receive Date: 20211019
  Receipt Date: 20211019
  Transmission Date: 20220303
  Serious: Yes (Death, Hospitalization)
  Sender: FDA-Public Use
  Company Number: US-JNJFOC-20211011332

PATIENT
  Age: 18 Year
  Sex: Male
  Weight: 69.5 kg

DRUGS (2)
  1. TYLENOL [Suspect]
     Active Substance: ACETAMINOPHEN
     Indication: Suicide attempt
     Dosage: ACETAMINOPHEN 650 MG (30 TABLETS) WITH TOTAL DOSE OF 20 GRAM
     Route: 048
     Dates: end: 20020604
  2. EXCEDRIN [Suspect]
     Active Substance: ACETAMINOPHEN\ASPIRIN\CAFFEINE
     Indication: Suicide attempt
     Dosage: ACETAMINOPHEN 250 MG, CAFFEINE UNK MG, ACETYLSALICYLIC ACID UNK MG (30--40 TABLETS) TAKEN ONCE WITH
     Route: 048
     Dates: end: 20020602

REACTIONS (10)
  - Completed suicide [Fatal]
  - Acute hepatic failure [Fatal]
  - Acute kidney injury [Fatal]
  - Pancreatitis [Fatal]
  - Cerebral haemorrhage [Fatal]
  - Pleural effusion [Fatal]
  - Pulmonary oedema [Fatal]
  - Atelectasis [Fatal]
  - Brain oedema [Fatal]
  - Intentional overdose [Fatal]
